FAERS Safety Report 9308366 (Version 2)
Quarter: 2013Q2

REPORT INFORMATION
  Report Type: Spontaneous
  Country: CN (occurrence: CN)
  Receive Date: 20130524
  Receipt Date: 20130614
  Transmission Date: 20140414
  Serious: Yes (Hospitalization)
  Sender: FDA-Public Use
  Company Number: CN-GLAXOSMITHKLINE-B0893924A

PATIENT
  Age: 56 Year
  Sex: Male

DRUGS (4)
  1. VENTOLIN [Suspect]
     Indication: COR PULMONALE
     Route: 055
  2. SERETIDE [Suspect]
     Indication: ASTHMA
     Dosage: 2PUFF PER DAY
     Route: 055
     Dates: start: 20130515, end: 201305
  3. PULMICORT [Concomitant]
     Indication: ASTHMA
     Dosage: .1MG PER DAY
     Route: 055
  4. TIOTROPIUM BROMIDE [Concomitant]
     Indication: ASTHMA
     Route: 055
     Dates: start: 20130515

REACTIONS (3)
  - Oedema peripheral [Recovering/Resolving]
  - Face oedema [Not Recovered/Not Resolved]
  - Dyspnoea [Not Recovered/Not Resolved]
